FAERS Safety Report 14667355 (Version 1)
Quarter: 2018Q1

REPORT INFORMATION
  Report Type: Spontaneous
  Country: FR (occurrence: FR)
  Receive Date: 20180322
  Receipt Date: 20180322
  Transmission Date: 20180509
  Serious: Yes (Other)
  Sender: FDA-Public Use
  Company Number: FR-MERCK KGAA-2044284

PATIENT
  Age: 59 Year
  Sex: Female

DRUGS (1)
  1. NOVOTHYROX [Suspect]
     Active Substance: LEVOTHYROXINE SODIUM
     Indication: THYROID DISORDER
     Dates: start: 2017

REACTIONS (22)
  - Pneumonia [Recovering/Resolving]
  - Asphyxia [Recovering/Resolving]
  - Sensation of foreign body [Recovering/Resolving]
  - Dysphagia [Recovering/Resolving]
  - Pharyngeal erythema [Recovering/Resolving]
  - Mood altered [Recovering/Resolving]
  - Thyroid mass [Recovering/Resolving]
  - Gait disturbance [Recovering/Resolving]
  - Fatigue [Recovering/Resolving]
  - Pharyngitis [Recovering/Resolving]
  - Cough [Recovering/Resolving]
  - Inflammation [Recovering/Resolving]
  - Loss of personal independence in daily activities [Recovering/Resolving]
  - Respiratory disorder [Recovering/Resolving]
  - Tongue dry [Recovering/Resolving]
  - Dry throat [Recovering/Resolving]
  - Malaise [Recovering/Resolving]
  - Asthenia [Recovering/Resolving]
  - Dry mouth [Recovering/Resolving]
  - Social avoidant behaviour [Recovering/Resolving]
  - Emotional distress [Recovering/Resolving]
  - Insomnia [Recovering/Resolving]

NARRATIVE: CASE EVENT DATE: 2017
